FAERS Safety Report 10127233 (Version 1)
Quarter: 2014Q2

REPORT INFORMATION
  Report Type: Spontaneous
  Country: JP (occurrence: JP)
  Receive Date: 20140428
  Receipt Date: 20140428
  Transmission Date: 20141212
  Serious: Yes (Other)
  Sender: FDA-Public Use
  Company Number: JP-MYLANLABS-2014S1009136

PATIENT
  Age: 65 Year
  Sex: Male
  Weight: 66.4 kg

DRUGS (5)
  1. VANCOMYCIN [Suspect]
     Indication: INTERVERTEBRAL DISCITIS
     Dosage: DOSE UNIT:0.5
     Route: 041
     Dates: start: 20140117, end: 20140319
  2. CEFEPIME [Suspect]
     Indication: INTERVERTEBRAL DISCITIS
     Dosage: DOSE UNIT:1
     Route: 041
     Dates: start: 20140130, end: 20140319
  3. TRAMAL [Concomitant]
     Indication: PRODUCT USED FOR UNKNOWN INDICATION
     Route: 048
  4. MAGLAX [Concomitant]
     Indication: PRODUCT USED FOR UNKNOWN INDICATION
     Route: 048
  5. KETOPROFEN [Concomitant]
     Indication: PRODUCT USED FOR UNKNOWN INDICATION
     Route: 061

REACTIONS (2)
  - Erythema multiforme [Recovering/Resolving]
  - Stevens-Johnson syndrome [Recovering/Resolving]
